FAERS Safety Report 6255610-6 (Version None)
Quarter: 2009Q3

REPORT INFORMATION
  Report Type: 
  Country: None (occurrence: None)
  Receive Date: 20090702
  Receipt Date: 20090624
  Transmission Date: 20100115
  Serious: Yes (Death)
  Sender: FDA-Public Use
  Company Number: US-BAXTER-2009BH010668

PATIENT
  Sex: Female

DRUGS (2)
  1. HEPARIN SODIUM INJECTION [Suspect]
     Indication: THROMBOSIS PROPHYLAXIS
     Route: 065
     Dates: start: 20070801, end: 20080129
  2. HEPARIN SODIUM INJECTION [Suspect]
     Indication: PROPHYLAXIS
     Route: 065
     Dates: start: 20070801, end: 20080129

REACTIONS (1)
  - DEATH [None]
